FAERS Safety Report 4819532-7 (Version None)
Quarter: 2005Q4

REPORT INFORMATION
  Report Type: 
  Country: None (occurrence: None)
  Receive Date: 20051102
  Receipt Date: 20051019
  Transmission Date: 20060501
  Serious: Yes (Hospitalization)
  Sender: FDA-Public Use
  Company Number: US-2005-016968

PATIENT
  Age: 55 Year
  Sex: Female
  Weight: 88.4 kg

DRUGS (17)
  1. BETAFERON(BETAFERON (SH Y 579E)) BETAFERON(INTERFERON BETA - 1B) INJEC [Suspect]
     Indication: RELAPSING-REMITTING MULTIPLE SCLEROSIS
     Dosage: 8 MIU, EVERY 2D, SUBCUTANEOUS
     Route: 058
     Dates: start: 20050202
  2. LEXAPRO [Concomitant]
  3. GABAPENTIN [Concomitant]
  4. ALPRAZOLAM [Concomitant]
  5. HYDROCODONE [Concomitant]
  6. HYDROCORTISONE [Concomitant]
  7. BACLOFEN [Concomitant]
  8. FAMOTIDINE [Concomitant]
  9. OXYCONTIN [Concomitant]
  10. AMLODIPINE [Concomitant]
  11. ATORVASTATIN CALCIUM [Concomitant]
  12. HYDROCHLOROTHIAZIDE [Concomitant]
  13. BUPROPION HCL [Concomitant]
  14. PERCOCET [Concomitant]
  15. ELAVIL [Concomitant]
  16. METHYLPREDNISOLONE [Concomitant]
  17. PREDNISONE [Concomitant]

REACTIONS (2)
  - MANIA [None]
  - NERVOUSNESS [None]
